FAERS Safety Report 16673083 (Version 1)
Quarter: 2019Q3

REPORT INFORMATION
  Report Type: Spontaneous
  Country: US (occurrence: US)
  Receive Date: 20190805
  Receipt Date: 20190805
  Transmission Date: 20191004
  Serious: Yes (Other)
  Sender: FDA-Public Use
  Company Number: None

PATIENT
  Age: 46 Year
  Sex: Female
  Weight: 62.1 kg

DRUGS (11)
  1. FLONASE [Concomitant]
     Active Substance: FLUTICASONE PROPIONATE
  2. ADVAIR HFA [Concomitant]
     Active Substance: FLUTICASONE PROPIONATE\SALMETEROL XINAFOATE
  3. MICROGESTIN 1/20 [Concomitant]
     Active Substance: ETHINYL ESTRADIOL\NORETHINDRONE ACETATE
  4. IBUPROFEN. [Concomitant]
     Active Substance: IBUPROFEN
  5. IPRATROPIUM (NASAL) [Concomitant]
  6. DILTIAZEM (USES PRN) [Concomitant]
  7. BUDESONIDE (NASAL) [Concomitant]
  8. SYMDEKO [Suspect]
     Active Substance: IVACAFTOR\TEZACAFTOR
     Indication: CYSTIC FIBROSIS
     Route: 048
     Dates: start: 20190622, end: 20190703
  9. PULMOZYME [Concomitant]
     Active Substance: DORNASE ALFA
  10. HYPERTONIC SALINE [Concomitant]
     Active Substance: SODIUM CHLORIDE
  11. ALBUTEROL. [Concomitant]
     Active Substance: ALBUTEROL

REACTIONS (4)
  - Condition aggravated [None]
  - Therapy cessation [None]
  - Rash morbilliform [None]
  - Rash pruritic [None]

NARRATIVE: CASE EVENT DATE: 20190630
